FAERS Safety Report 8598833 (Version 2)
Quarter: 2013Q3

REPORT INFORMATION
  Report Type: Spontaneous
  Country: US (occurrence: US)
  Receive Date: 20120605
  Receipt Date: 20130724
  Transmission Date: 20140515
  Serious: Yes (Hospitalization, Disabling, Other)
  Sender: FDA-Public Use
  Company Number: US-ASTRAZENECA-2012SE34494

PATIENT
  Age: 38 Year
  Sex: Female

DRUGS (9)
  1. NEXIUM [Suspect]
     Indication: GASTROOESOPHAGEAL REFLUX DISEASE
     Dosage: ONE TIME A DAY
     Route: 048
     Dates: start: 1994
  2. CALCIUM [Concomitant]
  3. VITAMIN E D B-12 D3/MULTIVITAMIN [Concomitant]
  4. MAGNESIUM [Concomitant]
  5. TRANSIDONE [Concomitant]
     Indication: SLEEP DISORDER
  6. MIRTAZAPINE [Concomitant]
     Indication: SLEEP DISORDER
  7. LASIX [Concomitant]
     Indication: FLUID RETENTION
  8. SPIRONOLACTONE [Concomitant]
     Indication: FLUID RETENTION
  9. BABY ASPIRIN [Concomitant]

REACTIONS (19)
  - Renal disorder [Unknown]
  - Viral infection [Unknown]
  - Adverse event [Unknown]
  - Blood potassium decreased [Unknown]
  - Memory impairment [Unknown]
  - Osteoporosis [Unknown]
  - Arthritis [Unknown]
  - Post-traumatic stress disorder [Unknown]
  - Diabetes mellitus [Unknown]
  - Liver disorder [Unknown]
  - Renal failure [Unknown]
  - Hyperhomocysteinaemia [Unknown]
  - Oedema [Unknown]
  - Splenomegaly [Unknown]
  - Hypertension [Unknown]
  - Rib fracture [Unknown]
  - Blood cholesterol increased [Unknown]
  - Dyspepsia [Unknown]
  - Depression [Unknown]
